FAERS Safety Report 12702620 (Version 1)
Quarter: 2016Q3

REPORT INFORMATION
  Report Type: Spontaneous
  Country: US (occurrence: US)
  Receive Date: 20160831
  Receipt Date: 20160831
  Transmission Date: 20161109
  Serious: No
  Sender: FDA-Public Use
  Company Number: US-B.I. PHARMACEUTICALS,INC./RIDGEFIELD-2016-BI-47442BP

PATIENT
  Age: 91 Year
  Sex: Female

DRUGS (14)
  1. EYE CAPS [Concomitant]
     Indication: MACULAR DEGENERATION
     Dosage: 1 ANZ
     Route: 048
     Dates: start: 2013
  2. CITRUCEL [Concomitant]
     Active Substance: METHYLCELLULOSE (4000 MPA.S)
     Indication: ABDOMINAL DISCOMFORT
     Route: 048
  3. SPIRIVA [Suspect]
     Active Substance: TIOTROPIUM BROMIDE MONOHYDRATE
     Indication: CHRONIC OBSTRUCTIVE PULMONARY DISEASE
     Dosage: 18 MCG
     Route: 055
  4. ZEAXANTHIN [Concomitant]
     Active Substance: ZEAXANTHIN
     Indication: MACULAR DEGENERATION
     Dosage: 4 MG
     Route: 065
  5. ALBUTEROL. [Concomitant]
     Active Substance: ALBUTEROL
     Indication: EMPHYSEMA
     Dosage: 2 ANZ
     Route: 055
     Dates: start: 2002
  6. DULERA [Concomitant]
     Active Substance: FORMOTEROL FUMARATE DIHYDRATE\MOMETASONE FUROATE
     Indication: CHRONIC OBSTRUCTIVE PULMONARY DISEASE
     Dosage: 4 ANZ
     Route: 055
     Dates: start: 2013
  7. MUCINEX [Concomitant]
     Active Substance: GUAIFENESIN
     Indication: MUCOUS MEMBRANE DISORDER
     Route: 048
  8. LUTEN [Concomitant]
     Indication: MACULAR DEGENERATION
     Route: 065
  9. MAGNESIUM [Concomitant]
     Active Substance: MAGNESIUM
     Indication: SUPPLEMENTATION THERAPY
     Dosage: 500 MG
     Route: 065
  10. VITAMIN D [Concomitant]
     Active Substance: CHOLECALCIFEROL
     Indication: SUPPLEMENTATION THERAPY
     Dosage: 200 U
     Route: 048
  11. Q 10 [Concomitant]
     Indication: SUPPLEMENTATION THERAPY
     Route: 065
  12. ASTAXANTHIN [Concomitant]
     Indication: MACULAR DEGENERATION
     Dosage: 4 MG
     Route: 065
  13. VITAMIN B12 [Concomitant]
     Active Substance: CYANOCOBALAMIN
     Indication: ANAEMIA
     Route: 058
  14. ESTER C [Concomitant]
     Indication: PRODUCT USED FOR UNKNOWN INDICATION
     Dosage: 500 MG
     Route: 065

REACTIONS (6)
  - Back pain [Not Recovered/Not Resolved]
  - Unevaluable event [Unknown]
  - Tinnitus [Not Recovered/Not Resolved]
  - Insomnia [Unknown]
  - Memory impairment [Unknown]
  - Mental impairment [Unknown]

NARRATIVE: CASE EVENT DATE: 201606
